FAERS Safety Report 21292206 (Version 2)
Quarter: 2022Q4

REPORT INFORMATION
  Report Type: Spontaneous
  Country: US (occurrence: US)
  Receive Date: 20220905
  Receipt Date: 20221027
  Transmission Date: 20230112
  Serious: Yes (Other)
  Sender: FDA-Public Use
  Company Number: US-CELGENE-USA-20201202207

PATIENT
  Age: 39 Year
  Sex: Female

DRUGS (4)
  1. REVLIMID [Suspect]
     Active Substance: LENALIDOMIDE
     Indication: Plasma cell myeloma
     Dosage: 25 MILLIGRAM
     Route: 050
     Dates: start: 201901, end: 201903
  2. REVLIMID [Suspect]
     Active Substance: LENALIDOMIDE
     Dosage: 10 MILLIGRAM
     Route: 050
     Dates: start: 201908, end: 201909
  3. REVLIMID [Suspect]
     Active Substance: LENALIDOMIDE
     Dosage: 15 MILLIGRAM
     Route: 050
     Dates: start: 201910, end: 202006
  4. REVLIMID [Suspect]
     Active Substance: LENALIDOMIDE
     Dosage: 5 MILLIGRAM
     Route: 050
     Dates: start: 202010

REACTIONS (3)
  - Exposure during pregnancy [Unknown]
  - Accidental exposure to product [Unknown]
  - Exposure via body fluid [Unknown]

NARRATIVE: CASE EVENT DATE: 20201207
